FAERS Safety Report 9998493 (Version 1)
Quarter: 2014Q1

REPORT INFORMATION
  Report Type: Spontaneous
  Country: US (occurrence: US)
  Receive Date: 20140312
  Receipt Date: 20140312
  Transmission Date: 20141002
  Serious: No
  Sender: FDA-Public Use
  Company Number: US-BIOGENIDEC-2013BI085701

PATIENT
  Age: 46 Year
  Sex: Male

DRUGS (5)
  1. TECFIDERA [Suspect]
     Indication: MULTIPLE SCLEROSIS
     Route: 048
     Dates: start: 201304
  2. TECFIDERA [Suspect]
     Indication: MULTIPLE SCLEROSIS
     Route: 048
     Dates: start: 20130514
  3. TECFIDERA [Suspect]
     Indication: MULTIPLE SCLEROSIS
     Route: 048
     Dates: end: 201310
  4. LAMISIL [Concomitant]
     Route: 048
  5. SYNTHROID [Concomitant]

REACTIONS (9)
  - Poor peripheral circulation [Recovered/Resolved]
  - Pain in extremity [Recovered/Resolved]
  - Mobility decreased [Recovered/Resolved]
  - Progressive multiple sclerosis [Unknown]
  - Fatigue [Recovered/Resolved]
  - Muscle spasms [Unknown]
  - Constipation [Unknown]
  - Nail discolouration [Unknown]
  - Local swelling [Recovered/Resolved]
